FAERS Safety Report 8926818 (Version 2)
Quarter: 2013Q2

REPORT INFORMATION
  Report Type: Spontaneous
  Country: US (occurrence: US)
  Receive Date: 20121127
  Receipt Date: 20130422
  Transmission Date: 20140414
  Serious: Yes (Other)
  Sender: FDA-Public Use
  Company Number: US-009507513-1211USA007716

PATIENT
  Age: 59 Year
  Sex: Female
  Weight: 69.84 kg

DRUGS (13)
  1. VICTRELIS [Suspect]
     Indication: HEPATITIS C
     Dosage: 800 MG, TID
     Route: 048
     Dates: start: 20120126, end: 20120323
  2. PEGASYS [Suspect]
     Dosage: 150 MICROGRAM, QD
     Dates: start: 20111229, end: 20120323
  3. PEGASYS [Suspect]
     Dosage: 90 MG, DAILY DURING ANEMIA
     Dates: start: 201202, end: 20120323
  4. REBETOL [Suspect]
     Dosage: 1200 MG DAY
     Route: 048
     Dates: start: 20111229, end: 20120214
  5. REBETOL [Suspect]
     Dosage: 800 MG, QD
     Route: 048
     Dates: start: 20120214, end: 20120222
  6. REBETOL [Suspect]
     Dosage: 600 MG, DAILY TOTAL
     Route: 048
     Dates: start: 20120222, end: 20120323
  7. EPOGEN [Concomitant]
     Dosage: 40.000U WEEKLY
     Route: 058
     Dates: start: 20120209, end: 20120323
  8. NEUPOGEN [Concomitant]
     Dosage: 300 MICROGRAM, WEEKLY
     Route: 058
     Dates: start: 20120229, end: 20120406
  9. MORPHINE [Concomitant]
     Dosage: 15 MG, BID
  10. OXYCODONE [Concomitant]
     Dosage: 15 MG, Q 6
  11. OMEPRAZOLE [Concomitant]
     Dosage: 20 MG, BID
  12. CALCIUM (UNSPECIFIED) [Concomitant]
     Dosage: SUPLEMENT DAILY ONGOING
  13. VITAMINS (UNSPECIFIED) [Concomitant]
     Dosage: SUPLEMENT DAILY ONGOING

REACTIONS (3)
  - Otitis externa [Recovered/Resolved]
  - Anaemia [Recovered/Resolved]
  - Deafness [Recovered/Resolved]
